FAERS Safety Report 17308395 (Version 6)
Quarter: 2020Q2

REPORT INFORMATION
  Report Type: Spontaneous
  Country: FR (occurrence: FR)
  Receive Date: 20200123
  Receipt Date: 20200608
  Transmission Date: 20200713
  Serious: Yes (Other)
  Sender: FDA-Public Use
  Company Number: FR-TEVA-2020-FR-1171476

PATIENT
  Age: 65 Year
  Sex: Female
  Weight: 74.8 kg

DRUGS (15)
  1. VANCOMYCINE [Suspect]
     Active Substance: VANCOMYCIN
     Dosage: 2.5 GRAM DAILY;
     Route: 042
  2. INORIAL 20 MG, COMPRIME [Concomitant]
     Active Substance: BILASTINE
     Route: 065
  3. VANCOMYCINE [Suspect]
     Active Substance: VANCOMYCIN
     Dosage: UNK??????????NOT KNOWN
     Route: 042
     Dates: start: 20191122, end: 20191212
  4. ESTRADIOL. [Concomitant]
     Active Substance: ESTRADIOL
  5. ESIDREX [Concomitant]
     Active Substance: HYDROCHLOROTHIAZIDE
  6. TAHOR [Concomitant]
     Active Substance: ATORVASTATIN CALCIUM
  7. FLUOXETINE (CHLORHYDRATE DE) [Concomitant]
     Active Substance: FLUOXETINE HYDROCHLORIDE
  8. CUBICIN [Suspect]
     Active Substance: DAPTOMYCIN
     Indication: DEVICE RELATED INFECTION
     Dosage: 850 MILLIGRAM DAILY;
     Route: 042
     Dates: start: 20191212, end: 20191217
  9. RIFAMPICINE [Suspect]
     Active Substance: RIFAMPIN
     Indication: DEVICE RELATED INFECTION
     Dosage: 1200 MILLIGRAM DAILY;
     Route: 048
     Dates: start: 20191212, end: 20191217
  10. ETORICOXIB. [Concomitant]
     Active Substance: ETORICOXIB
  11. VANCOMYCINE [Suspect]
     Active Substance: VANCOMYCIN
     Indication: DEVICE RELATED INFECTION
     Dosage: 2.5 GRAM DAILY;
     Route: 042
     Dates: start: 20191218, end: 20191219
  12. PANTOPRAZOLE [Concomitant]
     Active Substance: PANTOPRAZOLE
  13. LEVOTHYROX [Concomitant]
     Active Substance: LEVOTHYROXINE
  14. AMLODIPINE [Concomitant]
     Active Substance: AMLODIPINE BESYLATE
  15. BISOPROLOL (FUMARATE DE) [Concomitant]
     Active Substance: BISOPROLOL FUMARATE

REACTIONS (5)
  - Hepatic failure [Recovering/Resolving]
  - Renal failure [Recovering/Resolving]
  - Drug reaction with eosinophilia and systemic symptoms [Recovering/Resolving]
  - Eosinophilia [Recovered/Resolved]
  - Rash [Recovered/Resolved]

NARRATIVE: CASE EVENT DATE: 20191217
